FAERS Safety Report 6787870-7 (Version None)
Quarter: 2010Q2

REPORT INFORMATION
  Report Type: 
  Country: None (occurrence: None)
  Receive Date: 20100623
  Receipt Date: 20080610
  Transmission Date: 20101027
  Serious: No
  Sender: FDA-Public Use
  Company Number: US-PFIZER INC-2007082349

PATIENT
  Sex: Female

DRUGS (5)
  1. VIRACEPT [Suspect]
     Indication: HIV INFECTION
     Route: 048
  2. COMBIVIR [Suspect]
     Indication: HIV INFECTION
  3. KALETRA [Suspect]
     Indication: HIV INFECTION
     Dosage: 4 PILLS
     Route: 048
     Dates: start: 20070901, end: 20070901
  4. LIPITOR [Concomitant]
  5. CALCIUM CARBONATE [Concomitant]

REACTIONS (1)
  - NO ADVERSE EVENT [None]
